FAERS Safety Report 5730640-9 (Version None)
Quarter: 2008Q2

REPORT INFORMATION
  Report Type: 
  Country: None (occurrence: None)
  Receive Date: 20080507
  Receipt Date: 20080501
  Transmission Date: 20081010
  Serious: Yes (Disabling)
  Sender: FDA-Public Use
  Company Number: GB-TEVA-171117ISR

PATIENT
  Age: 48 Year
  Sex: Female
  Weight: 47 kg

DRUGS (1)
  1. SIMVASTATIN [Suspect]
     Indication: HYPERLIPIDAEMIA
     Route: 048
     Dates: start: 20080125, end: 20080410

REACTIONS (2)
  - ASTHMA [None]
  - EXERCISE TOLERANCE DECREASED [None]
